FAERS Safety Report 10376276 (Version 1)
Quarter: 2014Q3

REPORT INFORMATION
  Report Type: Spontaneous
  Country: BR (occurrence: BR)
  Receive Date: 20140811
  Receipt Date: 20140811
  Transmission Date: 20150326
  Serious: Yes (Other)
  Sender: FDA-Public Use
  Company Number: BR-PFIZER INC-2014218556

PATIENT
  Age: 55 Year
  Sex: Female
  Weight: 94 kg

DRUGS (7)
  1. PANTOPRAZOLE [Concomitant]
     Active Substance: PANTOPRAZOLE SODIUM
     Indication: GASTRIC DISORDER
     Dosage: ^40^, 1X/DAY
     Dates: start: 2007
  2. XALATAN [Suspect]
     Active Substance: LATANOPROST
     Indication: GLAUCOMA
     Dosage: 1 GTT IN EACH EYE (3UG), CONTINUOUS USE
     Route: 047
     Dates: start: 2004
  3. LEXOTAN [Concomitant]
     Active Substance: BROMAZEPAM
     Indication: SLEEP DISORDER
     Dosage: UNK, 1X/DAY
     Dates: start: 2009
  4. LIPILESS [Concomitant]
     Indication: BLOOD CHOLESTEROL INCREASED
     Dosage: 1 TABLET, DAILY
     Dates: start: 2009
  5. LIPILESS [Concomitant]
     Indication: BLOOD TRIGLYCERIDES INCREASED
  6. SIMVASTATIN. [Concomitant]
     Active Substance: SIMVASTATIN
     Indication: GASTRIC DISORDER
     Dosage: 1 TABLET (^300^), 1X/DAY AT NIGHT
  7. FLUOXETINE [Concomitant]
     Active Substance: FLUOXETINE\FLUOXETINE HYDROCHLORIDE
     Dosage: 1 TABLET, DAILY
     Dates: start: 2007

REACTIONS (1)
  - Cataract [Unknown]

NARRATIVE: CASE EVENT DATE: 2012
